FAERS Safety Report 4865778-1 (Version None)
Quarter: 2005Q4

REPORT INFORMATION
  Report Type: 
  Country: None (occurrence: None)
  Receive Date: 20051220
  Receipt Date: 20051208
  Transmission Date: 20060501
  Serious: Yes (Other)
  Sender: FDA-Public Use
  Company Number: 2005167541

PATIENT
  Sex: Male

DRUGS (2)
  1. NEURONTIN [Suspect]
     Indication: NEURALGIA
     Dosage: 1800 MG (600 MG, 3 IN 1 D), ORAL
     Route: 048
  2. MORPHINE [Suspect]
     Indication: ILL-DEFINED DISORDER

REACTIONS (3)
  - AGGRESSION [None]
  - PSYCHOTIC DISORDER [None]
  - THINKING ABNORMAL [None]
